FAERS Safety Report 8322115-8 (Version None)
Quarter: 2012Q2

REPORT INFORMATION
  Report Type: 
  Country: None (occurrence: None)
  Receive Date: 20120430
  Receipt Date: 20111006
  Transmission Date: 20120825
  Serious: Yes (Life-Threatening)
  Sender: FDA-Public Use
  Company Number: GB-ROCHE-790801

PATIENT
  Sex: Female
  Weight: 59.6 kg

DRUGS (12)
  1. NAPROXEN [Concomitant]
  2. METHOTREXATE [Suspect]
     Indication: RHEUMATOID ARTHRITIS
  3. RAMIPRIL [Concomitant]
     Dates: start: 20110716
  4. ACTEMRA [Suspect]
  5. ACTEMRA [Suspect]
  6. ATORVASTATIN [Concomitant]
     Dates: start: 20110713
  7. BISOPROLOL FUMARATE [Concomitant]
     Dates: start: 20110714
  8. ACTEMRA [Suspect]
     Indication: RHEUMATOID ARTHRITIS
     Dosage: LAST DOSE PRIOR TO SAE : 01 JULY 2011, FORM: INFUSION.
     Route: 042
     Dates: start: 20100430, end: 20110701
  9. FOLIC ACID [Suspect]
     Indication: RHEUMATOID ARTHRITIS
     Dosage: LAST DOSE PRIOR TO SAE: 12 JULY 2011.
     Route: 048
     Dates: start: 20100404, end: 20110712
  10. ACETAMINOPHEN [Concomitant]
     Dosage: DRUG TAKEN WHEN REQUIRED.
  11. ACTEMRA [Suspect]
  12. ACTEMRA [Suspect]

REACTIONS (1)
  - MYOCARDIAL INFARCTION [None]
